FAERS Safety Report 9599598 (Version 1)
Quarter: 2013Q4

REPORT INFORMATION
  Report Type: Spontaneous
  Country: US (occurrence: US)
  Receive Date: 20131004
  Receipt Date: 20131004
  Transmission Date: 20140711
  Serious: No
  Sender: FDA-Public Use
  Company Number: US-AMGEN-USASP2013030497

PATIENT
  Age: 45 Year
  Sex: Female
  Weight: 86.17 kg

DRUGS (7)
  1. ENBREL [Suspect]
     Indication: PRODUCT USED FOR UNKNOWN INDICATION
     Dosage: 50 MG, QWK
     Route: 058
     Dates: start: 20130301
  2. SYNTHROID [Concomitant]
     Dosage: 125 MUG, UNK
  3. OMEPRAZOLE [Concomitant]
     Dosage: 20.6 MG,DR
  4. IBUPROFEN [Concomitant]
     Dosage: 200 MG, UNK
  5. METHOTREXATE [Concomitant]
     Dosage: 200/8ML
  6. FOLIC ACID [Concomitant]
     Dosage: UNK
  7. VITAMIN D                          /00107901/ [Concomitant]
     Dosage: 2000 UNIT, UNK

REACTIONS (2)
  - Sinusitis [Recovering/Resolving]
  - Fungal infection [Recovering/Resolving]
